FAERS Safety Report 8072560-3 (Version None)
Quarter: 2012Q1

REPORT INFORMATION
  Report Type: 
  Country: None (occurrence: None)
  Receive Date: 20120126
  Receipt Date: 20120120
  Transmission Date: 20120608
  Serious: Yes (Life-Threatening, Other)
  Sender: FDA-Public Use
  Company Number: CA-ROXANE LABORATORIES, INC.-2012-EU-00503GD

PATIENT
  Age: 6 Decade
  Sex: Male

DRUGS (14)
  1. FOLIC ACID [Concomitant]
     Dosage: 5 MG
     Route: 048
  2. ALBUTEROL SULFATE AUTOHALER [Concomitant]
     Indication: DYSPNOEA
     Route: 055
  3. MORPHINE [Suspect]
     Indication: PAIN
     Dosage: SCHEDULE: DOSES OF 5-10 MG Q3H PRN
     Route: 048
  4. MORPHINE [Suspect]
     Dosage: SCHEDULE: DOSES OF 2 MG Q1H PRN
     Route: 042
  5. METHADONE HCL [Suspect]
  6. METHOTRIMEPRAZINE [Suspect]
     Dosage: LOW DOSE (10-15 MG)
     Route: 048
  7. DALTEPARIN SODIUM [Concomitant]
     Dosage: 5000 U
     Route: 058
  8. CLINDAMYCIN [Suspect]
     Indication: PNEUMONIA ASPIRATION
     Dosage: 1800 MG
     Route: 042
  9. IPRATROPIUM BROMIDE [Concomitant]
     Indication: DYSPNOEA
     Route: 055
  10. ACETAMINOPHEN W/ CODEINE [Suspect]
     Indication: PAIN
     Dosage: SCHEDULE: 1-2 TABLETS Q4H PRN; TOTAL DOSE: 3 DOSES OF 2 TABLETS, EACH CONTAINING ACETAMINOPHEN 325 M
     Route: 048
  11. METHADONE HCL [Suspect]
     Indication: DRUG DEPENDENCE
     Dosage: 50 MG
     Route: 048
  12. THIAMINE HCL [Concomitant]
     Dosage: 100 MG
     Route: 048
  13. MORPHINE [Suspect]
     Dosage: SCHEDULE: DOSES OF 5-10 MG Q3H PRN
     Route: 058
  14. CIPROFLOXACIN [Suspect]
     Indication: PNEUMONIA ASPIRATION
     Dosage: 800 MG
     Route: 042

REACTIONS (4)
  - RESPIRATORY DEPRESSION [None]
  - MIOSIS [None]
  - SOMNOLENCE [None]
  - DRUG INTERACTION [None]
